FAERS Safety Report 12359101 (Version 4)
Quarter: 2019Q4

REPORT INFORMATION
  Report Type: Spontaneous
  Country: US (occurrence: US)
  Receive Date: 20160512
  Receipt Date: 20191218
  Transmission Date: 20200122
  Serious: Yes (Other)
  Sender: FDA-Public Use
  Company Number: US-UCBSA-2015011182

PATIENT
  Sex: Female

DRUGS (1)
  1. CIMZIA [Suspect]
     Active Substance: CERTOLIZUMAB PEGOL
     Indication: PRODUCT USED FOR UNKNOWN INDICATION
     Dosage: UNKNOWN DOSAGE

REACTIONS (3)
  - Atrial fibrillation [Not Recovered/Not Resolved]
  - Arrhythmia [Not Recovered/Not Resolved]
  - Anxiety [Not Recovered/Not Resolved]
